FAERS Safety Report 21567849 (Version 1)
Quarter: 2022Q4

REPORT INFORMATION
  Report Type: Spontaneous
  Country: IL (occurrence: IL)
  Receive Date: 20221108
  Receipt Date: 20221108
  Transmission Date: 20230112
  Serious: Yes (Hospitalization)
  Sender: FDA-Public Use
  Company Number: IL-PFIZER INC-PV202200096229

PATIENT
  Age: 71 Year
  Sex: Male

DRUGS (17)
  1. LINEZOLID [Suspect]
     Active Substance: LINEZOLID
     Dosage: 1200 MG
     Dates: start: 20220920
  2. FUSID [FUROSEMIDE SODIUM] [Concomitant]
     Dosage: UNK
  3. PLAVIX [Concomitant]
     Active Substance: CLOPIDOGREL BISULFATE
     Dosage: 75 MG
  4. CADEX [BICALUTAMIDE] [Concomitant]
     Dosage: 2 MG
  5. CADEX [BICALUTAMIDE] [Concomitant]
     Dosage: 4 MG
  6. RECORMON [EPOETIN BETA] [Concomitant]
     Dosage: 5000 IU
  7. NEXIUM [Concomitant]
     Active Substance: ESOMEPRAZOLE MAGNESIUM
     Dosage: 40 MG
  8. RAMIPRIL [Concomitant]
     Active Substance: RAMIPRIL
     Dosage: 1.25 MG
  9. LIPITOR [Concomitant]
     Active Substance: ATORVASTATIN CALCIUM
     Dosage: 80 MG
  10. ALFACALCIDOL [Concomitant]
     Active Substance: ALFACALCIDOL
     Dosage: 0.25 MCG
  11. BISOPROLOL FUMARATE [Concomitant]
     Active Substance: BISOPROLOL FUMARATE
     Dosage: 2.5
  12. FOLIC ACID [Concomitant]
     Active Substance: FOLIC ACID
     Dosage: 5 MG
  13. ATZIRUT X [Concomitant]
     Dosage: UNK
  14. ENALAPRIL MALEATE\LERCANIDIPINE HYDROCHLORIDE [Concomitant]
     Active Substance: ENALAPRIL MALEATE\LERCANIDIPINE HYDROCHLORIDE
     Dosage: 10
  15. ASPIRIN [Concomitant]
     Active Substance: ASPIRIN
     Dosage: UNK
  16. RENVELA [Concomitant]
     Active Substance: SEVELAMER CARBONATE
     Dosage: 800 MG
  17. CINACALCET TEVA [Concomitant]
     Dosage: 30 MG

REACTIONS (4)
  - Nausea [Unknown]
  - Vomiting [Unknown]
  - Thrombocytopenia [Unknown]
  - Metabolic acidosis [Unknown]
